FAERS Safety Report 24256100 (Version 2)
Quarter: 2024Q3

REPORT INFORMATION
  Report Type: Report from Study
  Country: US (occurrence: US)
  Receive Date: 20240827
  Receipt Date: 20240909
  Transmission Date: 20241016
  Serious: No
  Sender: SANDOZ
  Company Number: US-SANDOZ-SDZ2024US046398

PATIENT
  Age: 61 Year
  Sex: Female

DRUGS (1)
  1. HYRIMOZ [Suspect]
     Active Substance: ADALIMUMAB-ADAZ
     Indication: Rheumatoid arthritis
     Dosage: 40 MG, Q2W (OTHER DOSAGE: 0.4 ML)
     Route: 058
     Dates: start: 20240329

REACTIONS (3)
  - Injection site haemorrhage [Not Recovered/Not Resolved]
  - Nasopharyngitis [Unknown]
  - Needle issue [Not Recovered/Not Resolved]

NARRATIVE: CASE EVENT DATE: 20240503
